FAERS Safety Report 21664178 (Version 1)
Quarter: 2022Q4

REPORT INFORMATION
  Report Type: Spontaneous
  Country: US (occurrence: US)
  Receive Date: 20221130
  Receipt Date: 20221130
  Transmission Date: 20230112
  Serious: No
  Sender: FDA-Public Use
  Company Number: US-ABBVIE-4171701

PATIENT
  Age: 39 Year
  Sex: Male
  Weight: 94.347 kg

DRUGS (2)
  1. HUMIRA [Suspect]
     Active Substance: ADALIMUMAB
     Indication: Psoriasis
     Dosage: FORM STRENGTH: 40
     Route: 058
     Dates: start: 2017
  2. FISH OIL [Concomitant]
     Active Substance: FISH OIL
     Indication: Vitamin supplementation

REACTIONS (1)
  - Psoriasis [Recovered/Resolved]

NARRATIVE: CASE EVENT DATE: 20220701
